FAERS Safety Report 9428285 (Version 1)
Quarter: 2013Q3

REPORT INFORMATION
  Report Type: Spontaneous
  Country: FR (occurrence: FR)
  Receive Date: 20130730
  Receipt Date: 20130730
  Transmission Date: 20140515
  Serious: Yes (Hospitalization)
  Sender: FDA-Public Use
  Company Number: FR-UCBSA-093427

PATIENT
  Age: 59 Year
  Sex: Female

DRUGS (6)
  1. KEPPRA [Suspect]
     Indication: EPILEPSY
     Dosage: 500 MG, 2 /DAY
     Route: 048
     Dates: start: 200404, end: 201307
  2. RIVOTRIL [Concomitant]
     Indication: CONVULSION
     Route: 048
  3. GARDENAL [Concomitant]
     Indication: EPILEPSY
     Dosage: 150 MG/D
     Route: 048
     Dates: start: 1990
  4. LAMICTAL [Concomitant]
     Indication: EPILEPSY
     Dosage: 50 MG/D
     Route: 048
     Dates: start: 200012
  5. LAMICTAL [Concomitant]
     Indication: EPILEPSY
     Dosage: 100 MG 2/DAY
     Dates: start: 20130613
  6. TEGRETOL [Concomitant]
     Indication: EPILEPSY
     Dosage: 800 MG/D
     Route: 048
     Dates: start: 1991

REACTIONS (3)
  - Insomnia [Recovered/Resolved]
  - Delirium [Recovered/Resolved]
  - Convulsion [Recovered/Resolved]
